FAERS Safety Report 16079681 (Version 3)
Quarter: 2019Q3

REPORT INFORMATION
  Report Type: Report from Study
  Country: US (occurrence: US)
  Receive Date: 20190315
  Receipt Date: 20190709
  Transmission Date: 20191004
  Serious: Yes (Other)
  Sender: FDA-Public Use
  Company Number: PHHY2018US201585

PATIENT
  Age: 9 Year
  Sex: Male

DRUGS (3)
  1. CYCLOPHOSPHAMIDE. [Concomitant]
     Active Substance: CYCLOPHOSPHAMIDE
     Indication: CHEMOTHERAPY
     Route: 065
  2. FLUDARABINE [Concomitant]
     Active Substance: FLUDARABINE PHOSPHATE
     Indication: CHEMOTHERAPY
     Route: 065
  3. KYMRIAH [Suspect]
     Active Substance: TISAGENLECLEUCEL
     Indication: B-CELL TYPE ACUTE LEUKAEMIA
     Dosage: UNK, ONCE/SINGLE
     Route: 041
     Dates: start: 2018

REACTIONS (10)
  - Out of specification test results [Unknown]
  - Hypoxia [Unknown]
  - Depressed level of consciousness [Unknown]
  - Hypotension [Unknown]
  - Cytopenia [Unknown]
  - Pyrexia [Unknown]
  - Generalised tonic-clonic seizure [Unknown]
  - Neurotoxicity [Recovered/Resolved]
  - Tremor [Unknown]
  - Cytokine release syndrome [Recovered/Resolved]
